FAERS Safety Report 7357766-0 (Version None)
Quarter: 2011Q1

REPORT INFORMATION
  Report Type: 
  Country: None (occurrence: None)
  Receive Date: 20110317
  Receipt Date: 20110308
  Transmission Date: 20110831
  Serious: Yes (Death, Hospitalization)
  Sender: FDA-Public Use
  Company Number: US-JNJFOC-NSADSS2001001196

PATIENT
  Age: 41 Year
  Sex: Female

DRUGS (5)
  1. TRAMADOL HCL [Suspect]
     Indication: FIBROMYALGIA
     Route: 048
  2. ACETAMINOPHEN [Suspect]
     Indication: ANALGESIC THERAPY
     Route: 065
  3. ACETAMINOPHEN [Suspect]
     Route: 065
  4. PROPOXYPHENE [Suspect]
     Indication: ANALGESIC THERAPY
     Route: 065
  5. ALCOHOL [Suspect]
     Indication: ANALGESIC THERAPY
     Route: 065

REACTIONS (5)
  - OVERDOSE [None]
  - HYPOXIA [None]
  - SYNCOPE [None]
  - CONVULSION [None]
  - DRUG ABUSE [None]
